FAERS Safety Report 21126112 (Version 1)
Quarter: 2022Q3

REPORT INFORMATION
  Report Type: Spontaneous
  Country: US (occurrence: None)
  Receive Date: 20220724
  Receipt Date: 20220724
  Transmission Date: 20221027
  Serious: Yes (Disabling, Other)
  Sender: FDA-Public Use
  Company Number: None

PATIENT
  Age: 68 Year
  Sex: Female
  Weight: 103.5 kg

DRUGS (16)
  1. NUCALA [Suspect]
     Active Substance: MEPOLIZUMAB
     Indication: Asthma
     Dosage: OTHER QUANTITY : 1 INJECTION(S);?OTHER FREQUENCY : ONCE A MONTH;?
     Dates: start: 20210803, end: 20220203
  2. LASIX [Concomitant]
     Active Substance: FUROSEMIDE
  3. LOSARTAN [Concomitant]
     Active Substance: LOSARTAN
  4. Spironolactone (Aldactone) [Concomitant]
  5. AZITHROMYCIN [Concomitant]
     Active Substance: AZITHROMYCIN
  6. Budesonide (Pulmicort) [Concomitant]
  7. Ipratropium-Albuterol (Duoneb) [Concomitant]
  8. PREDNISONE [Concomitant]
     Active Substance: PREDNISONE
  9. Albuterol HFA Singulair [Concomitant]
  10. THEOPHYLLINE ANHYDROUS [Concomitant]
     Active Substance: THEOPHYLLINE ANHYDROUS
  11. VALTREX [Concomitant]
     Active Substance: VALACYCLOVIR HYDROCHLORIDE
  12. BENADRYL [Concomitant]
     Active Substance: DIPHENHYDRAMINE HYDROCHLORIDE
  13. ERYTHROMYCIN [Concomitant]
     Active Substance: ERYTHROMYCIN
  14. PREDNISOLONE ACETATE [Concomitant]
     Active Substance: PREDNISOLONE ACETATE
  15. ACYCLOVIR [Concomitant]
     Active Substance: ACYCLOVIR
  16. GABAPENTIN [Concomitant]
     Active Substance: GABAPENTIN

REACTIONS (4)
  - Herpes zoster [None]
  - Impaired work ability [None]
  - Limb injury [None]
  - Visual impairment [None]

NARRATIVE: CASE EVENT DATE: 20220304
